FAERS Safety Report 6379322-3 (Version None)
Quarter: 2009Q3

REPORT INFORMATION
  Report Type: 
  Country: None (occurrence: None)
  Receive Date: 20090928
  Receipt Date: 20090916
  Transmission Date: 20100115
  Serious: Yes (Hospitalization)
  Sender: FDA-Public Use
  Company Number: US-ELI_LILLY_AND_COMPANY-US200909004101

PATIENT
  Sex: Female

DRUGS (4)
  1. GEMZAR [Suspect]
     Indication: OVARIAN CANCER RECURRENT
     Dates: start: 20090401
  2. AVASTIN [Concomitant]
     Indication: OVARIAN CANCER RECURRENT
     Dates: start: 20090401, end: 20090801
  3. COUMADIN [Concomitant]
     Dates: start: 20090801
  4. LOVENOX [Concomitant]
     Dates: start: 20090801

REACTIONS (6)
  - ALOPECIA [None]
  - CHILLS [None]
  - DEEP VEIN THROMBOSIS [None]
  - NAUSEA [None]
  - PULMONARY EMBOLISM [None]
  - PYREXIA [None]
